FAERS Safety Report 7648398-5 (Version None)
Quarter: 2011Q3

REPORT INFORMATION
  Report Type: 
  Country: None (occurrence: None)
  Receive Date: 20110801
  Receipt Date: 20110728
  Transmission Date: 20111222
  Serious: Yes (Other)
  Sender: FDA-Public Use
  Company Number: DE-PFIZER INC-2011140557

PATIENT
  Age: 24 Year
  Sex: Female
  Weight: 61 kg

DRUGS (1)
  1. VARENICLINE TARTRATE [Suspect]
     Indication: SMOKING CESSATION THERAPY
     Dosage: UNK
     Dates: start: 20080701, end: 20080101

REACTIONS (6)
  - INFERTILITY FEMALE [None]
  - ANOVULATORY CYCLE [None]
  - OESTRADIOL DECREASED [None]
  - AMENORRHOEA [None]
  - CYST [None]
  - C-REACTIVE PROTEIN INCREASED [None]
